FAERS Safety Report 7586033-5 (Version None)
Quarter: 2011Q2

REPORT INFORMATION
  Report Type: 
  Country: None (occurrence: None)
  Receive Date: 20110603
  Receipt Date: 20110512
  Transmission Date: 20111010
  Serious: No
  Sender: FDA-Public Use
  Company Number: 2011SP021923

PATIENT
  Age: 19 Year
  Sex: Female

DRUGS (3)
  1. SAPHRIS [Suspect]
     Indication: BIPOLAR DISORDER
     Dosage: 10 MG;BID;SL
     Route: 060
     Dates: start: 20110201
  2. ACTENOL [Concomitant]
  3. LAMICTAL [Concomitant]

REACTIONS (1)
  - HYPOMENORRHOEA [None]
